FAERS Safety Report 12068777 (Version 4)
Quarter: 2020Q2

REPORT INFORMATION
  Report Type: Report from Study
  Country: US (occurrence: US)
  Receive Date: 20160211
  Receipt Date: 20200506
  Transmission Date: 20200713
  Serious: Yes (Hospitalization, Other)
  Sender: FDA-Public Use
  Company Number: US-ACTELION-A-NJ2015-127807

PATIENT
  Age: 67 Year
  Sex: Male

DRUGS (5)
  1. OPSUMIT [Suspect]
     Active Substance: MACITENTAN
     Indication: PULMONARY ARTERIAL HYPERTENSION
     Dosage: 10 MG, QD
     Route: 048
     Dates: start: 20151109, end: 20160126
  2. COREG [Suspect]
     Active Substance: CARVEDILOL
     Indication: PRODUCT USED FOR UNKNOWN INDICATION
     Dosage: UNK
     Route: 065
     Dates: end: 201511
  3. SILDENAFIL. [Suspect]
     Active Substance: SILDENAFIL
     Indication: PRODUCT USED FOR UNKNOWN INDICATION
     Dosage: UNK
     Route: 065
     Dates: end: 201511
  4. COUMADIN [Concomitant]
     Active Substance: WARFARIN SODIUM
  5. ASA [Concomitant]
     Active Substance: ASPIRIN

REACTIONS (16)
  - Fall [Recovered/Resolved with Sequelae]
  - Blood blister [Recovered/Resolved with Sequelae]
  - Type IIa hyperlipidaemia [Not Recovered/Not Resolved]
  - Syncope [Recovered/Resolved]
  - Pulmonary oedema [Unknown]
  - Foot fracture [Recovered/Resolved with Sequelae]
  - Dialysis [Recovered/Resolved]
  - Epistaxis [Recovered/Resolved]
  - Hypoacusis [Not Recovered/Not Resolved]
  - Middle ear effusion [Not Recovered/Not Resolved]
  - Hypotension [Recovered/Resolved]
  - Nausea [Recovered/Resolved]
  - Cognitive disorder [Not Recovered/Not Resolved]
  - Ear disorder [Not Recovered/Not Resolved]
  - Vomiting [Recovered/Resolved]
  - Dizziness [Recovered/Resolved]

NARRATIVE: CASE EVENT DATE: 20151109
